FAERS Safety Report 4659646-8 (Version None)
Quarter: 2005Q2

REPORT INFORMATION
  Report Type: 
  Country: None (occurrence: None)
  Receive Date: 20050411
  Receipt Date: 20050207
  Transmission Date: 20051028
  Serious: Yes (Other)
  Sender: FDA-Public Use
  Company Number: A03200403612

PATIENT
  Age: 58 Year
  Sex: Male
  Weight: 78.4723 kg

DRUGS (4)
  1. UROXATRAL [Suspect]
     Indication: BENIGN PROSTATIC HYPERPLASIA
     Dosage: 10 MG OD - ORAL
     Route: 048
  2. INTERFERON [Concomitant]
  3. PEGINTERFERON ALFA-2A [Concomitant]
  4. MIRTAZAPINE [Concomitant]

REACTIONS (2)
  - HYPOTENSION [None]
  - NAUSEA [None]
